FAERS Safety Report 8506585-8 (Version None)
Quarter: 2012Q3

REPORT INFORMATION
  Report Type: 
  Country: None (occurrence: None)
  Receive Date: 20120712
  Receipt Date: 20120628
  Transmission Date: 20120928
  Serious: Yes (Life-Threatening, Hospitalization, Other)
  Sender: FDA-Public Use
  Company Number: GB-BRISTOL-MYERS SQUIBB COMPANY-13440623

PATIENT
  Age: 60 Year
  Sex: Female
  Weight: 61 kg

DRUGS (2)
  1. ERBITUX [Suspect]
     Indication: COLORECTAL CANCER METASTATIC
     Dosage: ROUTE: ALSO IV DRIP
     Route: 042
     Dates: start: 20051116, end: 20060316
  2. IRINOTECAN HCL [Suspect]
     Indication: COLORECTAL CANCER METASTATIC
     Dosage: ROUTE: ALSO IV DRIP
     Route: 042
     Dates: start: 20051116, end: 20060316

REACTIONS (3)
  - DERMATITIS ACNEIFORM [None]
  - INTESTINAL PERFORATION [None]
  - INTESTINAL ISCHAEMIA [None]
